FAERS Safety Report 15560155 (Version 1)
Quarter: 2018Q4

REPORT INFORMATION
  Report Type: Spontaneous
  Country: CA (occurrence: CA)
  Receive Date: 20181022
  Receipt Date: 20181022
  Transmission Date: 20190205
  Serious: Yes (Hospitalization)
  Sender: FDA-Public Use
  Company Number: None

PATIENT
  Age: 52 Year
  Sex: Male
  Weight: 86.4 kg

DRUGS (14)
  1. VALACYCLOVIR [Concomitant]
     Active Substance: VALACYCLOVIR HYDROCHLORIDE
  2. ZOFRAN [Concomitant]
     Active Substance: ONDANSETRON HYDROCHLORIDE
  3. CYCLOPHOSPHAMIDE. [Suspect]
     Active Substance: CYCLOPHOSPHAMIDE
     Dates: end: 20180904
  4. FILGRASTIM (GRASTOFIL) [Concomitant]
  5. CYTARABINE. [Suspect]
     Active Substance: CYTARABINE
     Dates: end: 20180914
  6. MERCAPTOPURINE. [Suspect]
     Active Substance: MERCAPTOPURINE
     Dates: end: 20181017
  7. PANTOPRAZOLE [Concomitant]
     Active Substance: PANTOPRAZOLE
  8. ONCASPAR [Suspect]
     Active Substance: PEGASPARGASE
     Dates: end: 20180814
  9. ACETAMINOPHEN. [Concomitant]
     Active Substance: ACETAMINOPHEN
  10. SULFAMETHOXAZOLE [Concomitant]
     Active Substance: SULFAMETHOXAZOLE
  11. TINZAPARIN [Concomitant]
     Active Substance: TINZAPARIN
  12. HYDROCORTISONE. [Suspect]
     Active Substance: HYDROCORTISONE
     Dates: end: 20180814
  13. METHOTREXATE. [Suspect]
     Active Substance: METHOTREXATE
     Dates: end: 20180821
  14. INDAPAMIDE. [Concomitant]
     Active Substance: INDAPAMIDE

REACTIONS (4)
  - Diarrhoea [None]
  - Rectal fissure [None]
  - Rectal haemorrhage [None]
  - Febrile neutropenia [None]

NARRATIVE: CASE EVENT DATE: 20180920
